FAERS Safety Report 21457646 (Version 1)
Quarter: 2022Q4

REPORT INFORMATION
  Report Type: Spontaneous
  Country: US (occurrence: US)
  Receive Date: 20221014
  Receipt Date: 20221014
  Transmission Date: 20230112
  Serious: Yes (Hospitalization)
  Sender: FDA-Public Use
  Company Number: US-SAMSUNG BIOEPIS-SB-2022-25510

PATIENT
  Age: 55 Year
  Sex: Male

DRUGS (4)
  1. INFLIXIMAB [Suspect]
     Active Substance: INFLIXIMAB
     Indication: Pustular psoriasis
     Dosage: 8.64 MG/KG,
     Route: 065
  2. INFLIXIMAB [Suspect]
     Active Substance: INFLIXIMAB
     Indication: Colitis ulcerative
  3. METHOTREXATE [Concomitant]
     Active Substance: METHOTREXATE
     Indication: Colitis ulcerative
     Route: 065
  4. METHOTREXATE [Concomitant]
     Active Substance: METHOTREXATE
     Indication: Pustular psoriasis

REACTIONS (8)
  - Meningitis listeria [Recovered/Resolved]
  - Bacteraemia [Recovered/Resolved]
  - Pustular psoriasis [Unknown]
  - Mental status changes [Recovered/Resolved]
  - Depressed level of consciousness [Unknown]
  - Heavy exposure to ultraviolet light [Unknown]
  - Drug ineffective for unapproved indication [Unknown]
  - Off label use [Unknown]
